FAERS Safety Report 24114804 (Version 1)
Quarter: 2024Q3

REPORT INFORMATION
  Report Type: Report from Study
  Country: US (occurrence: US)
  Receive Date: 20240721
  Receipt Date: 20240721
  Transmission Date: 20241017
  Serious: Yes (Hospitalization)
  Sender: BAXTER
  Company Number: US-BAXTER-2024BAX021518

PATIENT
  Age: 62 Year
  Sex: Male

DRUGS (13)
  1. DOXORUBICIN [Suspect]
     Active Substance: DOXORUBICIN
     Indication: Peripheral T-cell lymphoma unspecified
     Dosage: 112 MG, CYCLIC, DAY 1
     Route: 042
     Dates: start: 20231030
  2. DOXORUBICIN [Suspect]
     Active Substance: DOXORUBICIN
     Dosage: 112 MG, CYCLE 3 DAY 1, LAST DOSE PRIOR TO EVENT ONSET
     Route: 042
     Dates: start: 20231215, end: 20231215
  3. CYCLOPHOSPHAMIDE [Suspect]
     Active Substance: CYCLOPHOSPHAMIDE
     Indication: Peripheral T-cell lymphoma unspecified
     Dosage: 1680 MG, CYCLIC, DAY 1
     Route: 042
     Dates: start: 20231030
  4. CYCLOPHOSPHAMIDE [Suspect]
     Active Substance: CYCLOPHOSPHAMIDE
     Dosage: 1680 MG, CYCLE 3 DAY 1, LAST DOSE PRIOR TO EVENT ONSET
     Route: 042
     Dates: start: 20231215, end: 20231215
  5. BRENTUXIMAB VEDOTIN [Suspect]
     Active Substance: BRENTUXIMAB VEDOTIN
     Indication: Peripheral T-cell lymphoma unspecified
     Dosage: 167.4 MG, CYCLIC, DAY 1
     Route: 042
     Dates: start: 20231030
  6. BRENTUXIMAB VEDOTIN [Suspect]
     Active Substance: BRENTUXIMAB VEDOTIN
     Dosage: 167.4 MG, CYCLE 3 DAY 1, LAST DOSE PRIOR TO EVENT ONSET
     Route: 042
     Dates: start: 20231215, end: 20231215
  7. PEGFILGRASTIM [Suspect]
     Active Substance: PEGFILGRASTIM
     Indication: Peripheral T-cell lymphoma unspecified
     Dosage: UNK
     Route: 065
     Dates: start: 20231030
  8. PEGFILGRASTIM [Suspect]
     Active Substance: PEGFILGRASTIM
     Dosage: UNK, CYCLE 3 DAY 1, LAST DOSE PRIOR TO EVENT ONSET
     Route: 065
     Dates: start: 20231215, end: 20231215
  9. ETOPOSIDE [Suspect]
     Active Substance: ETOPOSIDE
     Indication: Peripheral T-cell lymphoma unspecified
     Dosage: 223 MG, CYCLIC, DAY 1
     Route: 042
     Dates: start: 20231030
  10. ETOPOSIDE [Suspect]
     Active Substance: ETOPOSIDE
     Dosage: 450 MG, CYCLIC, DAY 2 AND 3
     Route: 048
  11. ETOPOSIDE [Suspect]
     Active Substance: ETOPOSIDE
     Dosage: UNK, CYCLE 3 DAY 1, LAST DOSE PRIOR TO EVENT ONSET
     Route: 065
     Dates: start: 20231215, end: 20231215
  12. PREDNISONE [Suspect]
     Active Substance: PREDNISONE
     Indication: Peripheral T-cell lymphoma unspecified
     Dosage: 100 MG, CYCLIC, DAY 1 TO 5
     Route: 048
     Dates: start: 20231030
  13. PREDNISONE [Suspect]
     Active Substance: PREDNISONE
     Dosage: 100 MG, CYCLE 3 DAY 1, LAST DOSE PRIOR TO EVENT ONSET
     Route: 048
     Dates: start: 20231215, end: 20231215

REACTIONS (1)
  - Urinary tract infection [Recovered/Resolved]

NARRATIVE: CASE EVENT DATE: 20240104
